FAERS Safety Report 8470907-7 (Version None)
Quarter: 2012Q2

REPORT INFORMATION
  Report Type: 
  Country: None (occurrence: None)
  Receive Date: 20120627
  Receipt Date: 20120619
  Transmission Date: 20120825
  Serious: Yes (Hospitalization)
  Sender: FDA-Public Use
  Company Number: US-BAYER-2012-019910

PATIENT
  Age: 33 Year
  Sex: Female
  Weight: 101 kg

DRUGS (9)
  1. DROSPIRENONE AND ETHINYL ESTRADIOL [Suspect]
     Indication: CONTRACEPTION
     Dosage: UNK
     Dates: start: 20080805, end: 20100201
  2. YASMIN [Suspect]
     Indication: CONTRACEPTION
     Dosage: UNK
     Dates: start: 20061001, end: 20080805
  3. HYDROCODONE BITARTRATE AND ACETAMINOPHEN [Concomitant]
  4. CEPHALEXIN [Concomitant]
     Dosage: UNK
     Dates: start: 20091022, end: 20091029
  5. ANTACID [CALCIUM CARBONATE] [Concomitant]
  6. ZANTAC [Concomitant]
  7. LEXAPRO [Concomitant]
     Indication: DEPRESSION
     Dosage: UNK
     Dates: start: 20061017, end: 20100124
  8. VALTREX [Concomitant]
     Indication: GENITAL HERPES
     Dosage: UNK
     Dates: start: 20061013, end: 20091122
  9. YASMIN [Suspect]
     Indication: MENSTRUATION IRREGULAR

REACTIONS (5)
  - ABDOMINAL PAIN [None]
  - INJURY [None]
  - BILIARY DYSKINESIA [None]
  - PAIN [None]
  - CHOLECYSTECTOMY [None]
